FAERS Safety Report 24591748 (Version 1)
Quarter: 2024Q4

REPORT INFORMATION
  Report Type: Spontaneous
  Country: US (occurrence: US)
  Receive Date: 20241108
  Receipt Date: 20241108
  Transmission Date: 20250115
  Serious: Yes (Other)
  Sender: SANOFI AVENTIS
  Company Number: US-SA-2024SA321786

PATIENT
  Age: 58 Year
  Sex: Female

DRUGS (1)
  1. KEVZARA [Suspect]
     Active Substance: SARILUMAB
     Indication: Product used for unknown indication
     Dosage: 200 MG, QOW
     Route: 058
     Dates: end: 202410

REACTIONS (8)
  - Rheumatoid arthritis [Not Recovered/Not Resolved]
  - Toothache [Recovered/Resolved]
  - Gingival bleeding [Recovered/Resolved]
  - Stomatitis [Recovered/Resolved]
  - Joint swelling [Recovered/Resolved]
  - Skin haemorrhage [Recovered/Resolved]
  - Scratch [Recovered/Resolved]
  - Pain of skin [Recovered/Resolved]
